FAERS Safety Report 6074693-X (Version None)
Quarter: 2009Q1

REPORT INFORMATION
  Report Type: 
  Country: None (occurrence: None)
  Receive Date: 20090209
  Receipt Date: 20090209
  Transmission Date: 20090719
  Serious: No
  Sender: FDA-Public Use
  Company Number: None

PATIENT
  Age: 77 Year
  Sex: Female
  Weight: 99.7913 kg

DRUGS (2)
  1. ZETIA [Suspect]
     Indication: BLOOD CHOLESTEROL INCREASED
     Dosage: THINK SO STUPID ENOUGH TO TAKE IT 3 MO.
  2. ZETIA [Suspect]
     Indication: BLOOD TRIGLYCERIDES INCREASED
     Dosage: THINK SO STUPID ENOUGH TO TAKE IT 3 MO.

REACTIONS (4)
  - MALAISE [None]
  - RETCHING [None]
  - VOMITING [None]
  - WHEELCHAIR USER [None]
